FAERS Safety Report 12627693 (Version 3)
Quarter: 2016Q3

REPORT INFORMATION
  Report Type: Report from Study
  Country: US (occurrence: US)
  Receive Date: 20160805
  Receipt Date: 20160818
  Transmission Date: 20161109
  Serious: No
  Sender: FDA-Public Use
  Company Number: US-AMGEN-USASL2016100046

PATIENT
  Age: 77 Year
  Sex: Female

DRUGS (1)
  1. ENBREL [Suspect]
     Active Substance: ETANERCEPT
     Indication: RHEUMATOID ARTHRITIS
     Dosage: 50 MG, UNK
     Route: 065
     Dates: start: 20001101

REACTIONS (12)
  - Injection site swelling [Unknown]
  - Injection site discomfort [Unknown]
  - Injection site pruritus [Unknown]
  - Rash papular [Unknown]
  - Injection site reaction [Not Recovered/Not Resolved]
  - Rash [Unknown]
  - Adverse drug reaction [Unknown]
  - Injection site erythema [Unknown]
  - Erythema [Unknown]
  - Rash macular [Unknown]
  - Contusion [Unknown]
  - Intentional product misuse [Unknown]

NARRATIVE: CASE EVENT DATE: 201607
